FAERS Safety Report 18337931 (Version 4)
Quarter: 2022Q3

REPORT INFORMATION
  Report Type: Spontaneous
  Country: FR (occurrence: FR)
  Receive Date: 20201002
  Receipt Date: 20220726
  Transmission Date: 20221027
  Serious: Yes (Hospitalization, Other)
  Sender: FDA-Public Use
  Company Number: None

PATIENT
  Age: 90 Year
  Sex: Male
  Weight: 67 kg

DRUGS (26)
  1. POTASSIUM CHLORIDE [Suspect]
     Active Substance: POTASSIUM CHLORIDE
     Indication: Product used for unknown indication
     Dosage: 1800 MG, QD (FROM 18 AUG 2017)
     Route: 048
  2. AMIODARONE [Suspect]
     Active Substance: AMIODARONE
     Indication: Arrhythmia prophylaxis
     Dosage: 200 MG, QD
     Route: 048
     Dates: start: 20170731
  3. ALPRAZOLAM [Suspect]
     Active Substance: ALPRAZOLAM
     Indication: Product used for unknown indication
     Dosage: 1 MG, QD (INDICATION: BENZODIAZEPINE)
     Route: 048
     Dates: start: 20170731, end: 20170731
  4. ALPRAZOLAM [Suspect]
     Active Substance: ALPRAZOLAM
     Dosage: 0.13 MG, QD (0.125 MILLIGRAM DAILY)
     Route: 065
     Dates: start: 20170808, end: 20170808
  5. ALPRAZOLAM [Suspect]
     Active Substance: ALPRAZOLAM
     Dosage: 0.5 MG, QD
     Route: 065
     Dates: start: 20170809, end: 20170810
  6. PANTOPRAZOLE SODIUM [Suspect]
     Active Substance: PANTOPRAZOLE SODIUM
     Indication: Gastrooesophageal reflux prophylaxis
     Dosage: 40 MG, QD (FROM 06 AUG 2017)
     Route: 048
  7. PANTOPRAZOLE SODIUM [Suspect]
     Active Substance: PANTOPRAZOLE SODIUM
     Indication: Immune thrombocytopenia
  8. FUROSEMIDE [Suspect]
     Active Substance: FUROSEMIDE
     Indication: Diuretic therapy
     Dosage: 20 MG, QD
     Route: 048
     Dates: start: 20170730, end: 20170731
  9. FUROSEMIDE [Suspect]
     Active Substance: FUROSEMIDE
     Dosage: 20 MG, QD
     Route: 048
     Dates: start: 20170802
  10. PRAVASTATIN [Suspect]
     Active Substance: PRAVASTATIN
     Indication: Dyslipidaemia
     Dosage: 10 MG, QD
     Route: 048
     Dates: start: 20170729
  11. TRAMADOL [Suspect]
     Active Substance: TRAMADOL
     Indication: Antiinflammatory therapy
     Dosage: 50 MG, QD (FROM 16 AUG 2017)
     Route: 048
     Dates: end: 20170816
  12. TRAMADOL [Suspect]
     Active Substance: TRAMADOL
     Dosage: 50 MG, QD
     Route: 048
     Dates: start: 20170820, end: 20170821
  13. ACETAMINOPHEN [Suspect]
     Active Substance: ACETAMINOPHEN
     Indication: Analgesic therapy
     Dosage: 2000 MG, QD
     Route: 048
     Dates: start: 20170801, end: 20170802
  14. ACETAMINOPHEN [Suspect]
     Active Substance: ACETAMINOPHEN
     Dosage: 2000 MG, QD
     Route: 048
     Dates: start: 20170812
  15. TAMSULOSIN [Suspect]
     Active Substance: TAMSULOSIN
     Indication: Product used for unknown indication
     Dosage: 0.4 MG, DAILY, USED AS ALPHA BLOCKER
     Route: 048
     Dates: start: 20170730
  16. ASPIRIN [Suspect]
     Active Substance: ASPIRIN
     Indication: Product used for unknown indication
     Dosage: 75 MG, QD
     Route: 048
     Dates: start: 20170701, end: 20170820
  17. APIXABAN [Suspect]
     Active Substance: APIXABAN
     Indication: Product used for unknown indication
     Dosage: UNK (NO DOSE GIVEN)
     Route: 065
  18. WARFARIN SODIUM [Suspect]
     Active Substance: WARFARIN SODIUM
     Indication: Product used for unknown indication
     Dosage: 4 MG, QD
     Route: 048
     Dates: start: 20170803, end: 20170805
  19. WARFARIN SODIUM [Suspect]
     Active Substance: WARFARIN SODIUM
     Dosage: 4 MG, QD
     Route: 048
     Dates: start: 20170819
  20. SYMBICORT [Suspect]
     Active Substance: BUDESONIDE\FORMOTEROL FUMARATE DIHYDRATE
     Indication: Product used for unknown indication
     Dosage: UNK, AS A BRONCHODILATOR
     Route: 048
     Dates: start: 20170729
  21. PHLOROGLUCINOL [Concomitant]
     Active Substance: PHLOROGLUCINOL
     Indication: Prophylaxis
     Dosage: 480 MG, QD
     Route: 048
     Dates: start: 20170805
  22. ASPIRIN [Concomitant]
     Active Substance: ASPIRIN
     Indication: Product used for unknown indication
     Dosage: 75 MG, DAILY
     Route: 048
     Dates: start: 20170701
  23. ASPIRIN [Concomitant]
     Active Substance: ASPIRIN
     Dosage: 75 MG, QD
     Route: 048
     Dates: start: 20170801
  24. IMOVANE [Concomitant]
     Active Substance: ZOPICLONE
     Indication: Psychotherapy
     Dosage: 3.75 MG, QD
     Route: 048
     Dates: start: 20170806
  25. SIMVASTATIN [Concomitant]
     Active Substance: SIMVASTATIN
     Indication: Product used for unknown indication
     Dosage: 10 MG, QD
     Route: 048
  26. BISOPROLOL [Concomitant]
     Active Substance: BISOPROLOL
     Indication: Hypertension
     Dosage: 1.25 MG, QD
     Route: 048

REACTIONS (6)
  - Arteriovenous fistula [Recovered/Resolved]
  - Rectal haemorrhage [Recovered/Resolved]
  - Femoral artery aneurysm [Recovered/Resolved]
  - Vascular pseudoaneurysm [Recovered/Resolved]
  - Atrioventricular block [Recovered/Resolved]
  - Puncture site haematoma [Recovered/Resolved]

NARRATIVE: CASE EVENT DATE: 20170803
